FAERS Safety Report 18174351 (Version 4)
Quarter: 2021Q1

REPORT INFORMATION
  Report Type: Spontaneous
  Country: CA (occurrence: CA)
  Receive Date: 20200820
  Receipt Date: 20210330
  Transmission Date: 20210419
  Serious: Yes (Hospitalization, Other)
  Sender: FDA-Public Use
  Company Number: CA-ASTRAZENECA-2020SF04311

PATIENT
  Age: 40 Year
  Sex: Male

DRUGS (72)
  1. AMISULPRIDE [Suspect]
     Active Substance: AMISULPRIDE
     Indication: SCHIZOPHRENIA
     Dosage: 1200.0MG UNKNOWN
     Route: 065
  2. ASENAPINE MALEATE [Suspect]
     Active Substance: ASENAPINE MALEATE
     Indication: SCHIZOPHRENIA
     Route: 065
  3. LITHIUM CARBONATE. [Suspect]
     Active Substance: LITHIUM CARBONATE
     Indication: AFFECTIVE DISORDER
     Dosage: 1800.0MG UNKNOWN
     Route: 065
  4. LITHIUM CARBONATE. [Suspect]
     Active Substance: LITHIUM CARBONATE
     Indication: SCHIZOPHRENIA
     Dosage: 2400.0MG UNKNOWN
     Route: 065
  5. LITHIUM CARBONATE. [Suspect]
     Active Substance: LITHIUM CARBONATE
     Indication: AFFECTIVE DISORDER
     Dosage: 2400.0MG UNKNOWN
     Route: 065
  6. LOXAPINE SUCCINATE. [Suspect]
     Active Substance: LOXAPINE SUCCINATE
     Indication: SCHIZOPHRENIA
     Dosage: 50.0MG UNKNOWN
     Route: 065
  7. PERPHENAZINE. [Suspect]
     Active Substance: PERPHENAZINE
     Indication: PSYCHOTIC DISORDER
     Dosage: 32.0MG UNKNOWN
     Route: 065
     Dates: start: 200708, end: 200708
  8. PERPHENAZINE. [Suspect]
     Active Substance: PERPHENAZINE
     Indication: SCHIZOPHRENIA
     Dosage: UNKNOWN
     Route: 065
  9. THIORIDAZINE [Suspect]
     Active Substance: THIORIDAZINE
     Indication: SCHIZOPHRENIA
     Route: 048
     Dates: start: 20070628
  10. TRIFLUOPERAZINE HYDROCHLORIDE. [Suspect]
     Active Substance: TRIFLUOPERAZINE HYDROCHLORIDE
     Indication: SCHIZOPHRENIA
     Dosage: 5.0MG UNKNOWN
     Route: 065
     Dates: start: 20080326, end: 20090319
  11. FLUPENTIXOL [Concomitant]
     Active Substance: FLUPENTIXOL
  12. TRIFLUOPERAZINE [Concomitant]
     Active Substance: TRIFLUOPERAZINE HYDROCHLORIDE
  13. ARIPIPRAZOLE. [Suspect]
     Active Substance: ARIPIPRAZOLE
     Indication: SCHIZOPHRENIA
     Dosage: 30.0MG UNKNOWN
     Route: 065
  14. LITHIUM CARBONATE. [Suspect]
     Active Substance: LITHIUM CARBONATE
     Indication: SCHIZOPHRENIA
     Dosage: 1800.0MG UNKNOWN
     Route: 065
  15. LITHIUM CARBONATE. [Suspect]
     Active Substance: LITHIUM CARBONATE
     Indication: AFFECTIVE DISORDER
     Dosage: 1050.0MG UNKNOWN
     Route: 065
  16. LOXAPINE SUCCINATE. [Suspect]
     Active Substance: LOXAPINE SUCCINATE
     Indication: SCHIZOPHRENIA
     Dosage: 200.0MG UNKNOWN
     Route: 065
  17. THIORIDAZINE [Suspect]
     Active Substance: THIORIDAZINE
     Indication: PSYCHOTIC DISORDER
     Route: 048
     Dates: start: 20070628
  18. QUETIAPINE FUMARATE. [Concomitant]
     Active Substance: QUETIAPINE FUMARATE
  19. AMISULPRIDE [Suspect]
     Active Substance: AMISULPRIDE
     Indication: SCHIZOPHRENIA
     Dosage: 30.0MG UNKNOWN
     Route: 065
  20. HALOPERIDOL. [Suspect]
     Active Substance: HALOPERIDOL
     Indication: SCHIZOPHRENIA
     Dosage: 5.0MG UNKNOWN
     Route: 065
  21. PERPHENAZINE. [Suspect]
     Active Substance: PERPHENAZINE
     Indication: SCHIZOPHRENIA
     Dosage: 32.0MG UNKNOWN
     Route: 065
     Dates: start: 200708, end: 200708
  22. PERPHENAZINE. [Suspect]
     Active Substance: PERPHENAZINE
     Indication: PSYCHOTIC DISORDER
     Dosage: UNKNOWN
     Route: 065
  23. RISPERIDONE. [Suspect]
     Active Substance: RISPERIDONE
     Indication: SCHIZOPHRENIA
     Dosage: 3.0MG UNKNOWN
     Route: 065
  24. XYLAC [Suspect]
     Active Substance: LOXAPINE SUCCINATE
     Indication: SCHIZOPHRENIA
     Dosage: 50.0MG UNKNOWN
     Route: 065
  25. ZELDOX [Suspect]
     Active Substance: ZIPRASIDONE
     Indication: SCHIZOPHRENIA
     Dosage: 100.0MG UNKNOWN
     Route: 048
  26. LOXAPINE. [Concomitant]
     Active Substance: LOXAPINE
  27. PERPHENAZINE. [Concomitant]
     Active Substance: PERPHENAZINE
  28. CLOZAPINE. [Suspect]
     Active Substance: CLOZAPINE
     Indication: SCHIZOPHRENIA
     Dosage: 350.0MG UNKNOWN
     Route: 048
  29. LITHIUM CARBONATE. [Suspect]
     Active Substance: LITHIUM CARBONATE
     Indication: SCHIZOPHRENIA
     Dosage: 1050.0MG UNKNOWN
     Route: 065
  30. OLANZAPINE. [Suspect]
     Active Substance: OLANZAPINE
     Indication: SCHIZOPHRENIA
     Dosage: 20.0MG UNKNOWN
     Route: 065
  31. PERPHENAZINE. [Suspect]
     Active Substance: PERPHENAZINE
     Indication: SCHIZOPHRENIA
     Dosage: UNKNOWN
     Route: 065
  32. ZIPRASIDONE. [Suspect]
     Active Substance: ZIPRASIDONE
     Indication: SCHIZOPHRENIA
     Dosage: 100.0MG UNKNOWN
     Route: 065
  33. CITALOPRAM [Concomitant]
     Active Substance: CITALOPRAM HYDROBROMIDE
     Indication: PRODUCT USED FOR UNKNOWN INDICATION
     Route: 065
  34. FLUOXETINE [Concomitant]
     Active Substance: FLUOXETINE HYDROCHLORIDE
  35. GABAPENTIN. [Concomitant]
     Active Substance: GABAPENTIN
  36. THIORIDAZINE [Concomitant]
     Active Substance: THIORIDAZINE
  37. QUETIAPINE FUMARATE. [Suspect]
     Active Substance: QUETIAPINE FUMARATE
     Indication: PSYCHOTIC DISORDER
     Route: 048
     Dates: start: 200903
  38. CITALOPRAM HYDROBROMIDE BP [Suspect]
     Active Substance: CITALOPRAM HYDROBROMIDE
     Indication: SCHIZOPHRENIA
     Dosage: 80.0MG UNKNOWN
     Route: 065
  39. HALOPERIDOL. [Suspect]
     Active Substance: HALOPERIDOL
     Indication: SCHIZOPHRENIA
     Dosage: 5.0MG UNKNOWN
     Route: 065
  40. OLANZAPINE. [Suspect]
     Active Substance: OLANZAPINE
     Indication: SCHIZOPHRENIA
     Dosage: 15.0MG UNKNOWN
     Route: 065
  41. RISPERIDONE. [Suspect]
     Active Substance: RISPERIDONE
     Indication: SCHIZOPHRENIA
     Dosage: 3.0MG UNKNOWN
     Route: 065
  42. SAPHRIS [Suspect]
     Active Substance: ASENAPINE MALEATE
     Indication: SCHIZOPHRENIA
     Dosage: 100.0MG UNKNOWN
     Route: 048
  43. ZIPRASIDONE HYDROCHLORIDE. [Suspect]
     Active Substance: ZIPRASIDONE HYDROCHLORIDE
     Indication: SCHIZOPHRENIA
     Route: 048
     Dates: start: 2012, end: 2012
  44. ARIPIPRAZOLE. [Concomitant]
     Active Substance: ARIPIPRAZOLE
  45. SAPHRIS [Concomitant]
     Active Substance: ASENAPINE MALEATE
  46. ZIPRASIDONE MESILATE [Concomitant]
     Active Substance: ZIPRASIDONE
     Indication: PRODUCT USED FOR UNKNOWN INDICATION
     Route: 065
  47. QUETIAPINE FUMARATE. [Suspect]
     Active Substance: QUETIAPINE FUMARATE
     Indication: PRODUCT USED FOR UNKNOWN INDICATION
     Route: 048
     Dates: start: 200903
  48. CITALOPRAM [Suspect]
     Active Substance: CITALOPRAM HYDROBROMIDE
     Indication: SCHIZOPHRENIA
     Dosage: 80.0MG UNKNOWN
     Route: 065
  49. CLOMIPRAMINE [Suspect]
     Active Substance: CLOMIPRAMINE
     Indication: SCHIZOPHRENIA
     Dosage: 250.0MG UNKNOWN
     Route: 065
  50. FLUOXETINE [Suspect]
     Active Substance: FLUOXETINE HYDROCHLORIDE
     Indication: SCHIZOPHRENIA
     Dosage: 80.0MG UNKNOWN
     Route: 065
  51. FLUPENTIXOL [Suspect]
     Active Substance: FLUPENTIXOL
     Indication: SCHIZOPHRENIA
     Dosage: 6.0MG UNKNOWN
     Route: 065
  52. GABAPENTIN. [Suspect]
     Active Substance: GABAPENTIN
     Indication: SCHIZOPHRENIA
     Dosage: 600.0MG UNKNOWN
     Route: 065
  53. LITHIUM. [Suspect]
     Active Substance: LITHIUM
     Indication: SCHIZOPHRENIA
     Route: 065
  54. PERPHENAZINE. [Suspect]
     Active Substance: PERPHENAZINE
     Indication: PSYCHOTIC DISORDER
     Dosage: UNKNOWN
     Route: 065
  55. ZIPRASIDONE HYDROCHLORIDE. [Suspect]
     Active Substance: ZIPRASIDONE HYDROCHLORIDE
     Indication: PSYCHOTIC DISORDER
     Route: 048
     Dates: start: 2012, end: 2012
  56. VALPROATE SODIUM. [Concomitant]
     Active Substance: VALPROATE SODIUM
  57. LITHIUM. [Suspect]
     Active Substance: LITHIUM
     Indication: SCHIZOPHRENIA
     Route: 065
  58. LITHIUM. [Suspect]
     Active Substance: LITHIUM
     Indication: SCHIZOPHRENIA
     Route: 065
  59. LOXAPINE SUCCINATE. [Suspect]
     Active Substance: LOXAPINE SUCCINATE
     Indication: SCHIZOPHRENIA
     Dosage: 75.0MG UNKNOWN
     Route: 065
  60. OLANZAPINE. [Suspect]
     Active Substance: OLANZAPINE
     Indication: SCHIZOPHRENIA
     Dosage: 40.0MG UNKNOWN
     Route: 065
  61. RISPERIDONE. [Suspect]
     Active Substance: RISPERIDONE
     Indication: SCHIZOPHRENIA
     Dosage: 4.0MG UNKNOWN
     Route: 065
  62. RISPERIDONE. [Suspect]
     Active Substance: RISPERIDONE
     Indication: SCHIZOPHRENIA
     Dosage: 8.0MG UNKNOWN
     Route: 065
     Dates: start: 201404, end: 201404
  63. XYLAC [Suspect]
     Active Substance: LOXAPINE SUCCINATE
     Indication: SCHIZOPHRENIA
     Dosage: 200.0MG UNKNOWN
     Route: 065
  64. XYLAC [Suspect]
     Active Substance: LOXAPINE SUCCINATE
     Indication: SCHIZOPHRENIA
     Dosage: 75.0MG UNKNOWN
     Route: 065
  65. ABILIFY [Concomitant]
     Active Substance: ARIPIPRAZOLE
     Indication: PRODUCT USED FOR UNKNOWN INDICATION
     Route: 065
  66. QUETIAPINE FUMARATE. [Suspect]
     Active Substance: QUETIAPINE FUMARATE
     Indication: SCHIZOPHRENIA
     Route: 048
     Dates: start: 200903
  67. CITALOPRAM [Suspect]
     Active Substance: CITALOPRAM HYDROBROMIDE
     Indication: SCHIZOPHRENIA
     Dosage: 250.0MG UNKNOWN
     Route: 065
  68. CLOZAPINE. [Suspect]
     Active Substance: CLOZAPINE
     Indication: SCHIZOPHRENIA
     Dosage: 350.0MG UNKNOWN
     Route: 048
  69. GABAPENTIN. [Suspect]
     Active Substance: GABAPENTIN
     Indication: SCHIZOPHRENIA
     Dosage: 1800.0MG UNKNOWN
     Route: 065
  70. SAPHRIS [Suspect]
     Active Substance: ASENAPINE MALEATE
     Indication: SCHIZOPHRENIA
     Dosage: 600.0MG UNKNOWN
     Route: 048
     Dates: start: 2012, end: 2012
  71. AMISULPRIDE [Concomitant]
     Active Substance: AMISULPRIDE
  72. CLOMIPRAMINE [Concomitant]
     Active Substance: CLOMIPRAMINE

REACTIONS (21)
  - Toxicity to various agents [Unknown]
  - Increased appetite [Unknown]
  - Therapeutic product effect incomplete [Unknown]
  - Suicide attempt [Unknown]
  - Obesity [Unknown]
  - Therapeutic product effect variable [Unknown]
  - Dyslipidaemia [Unknown]
  - Akathisia [Unknown]
  - Product use in unapproved indication [Unknown]
  - Off label use [Unknown]
  - Euphoric mood [Unknown]
  - Hypertension [Unknown]
  - Leukopenia [Unknown]
  - Schizoaffective disorder [Unknown]
  - Antipsychotic drug level below therapeutic [Unknown]
  - Drug ineffective [Unknown]
  - Prescribed overdose [Unknown]
  - Irritability [Unknown]
  - Weight increased [Unknown]
  - Disinhibition [Unknown]
  - Obsessive-compulsive disorder [Unknown]
